FAERS Safety Report 9179766 (Version 2)
Quarter: 2013Q4

REPORT INFORMATION
  Report Type: Spontaneous
  Country: CN (occurrence: CN)
  Receive Date: 20130321
  Receipt Date: 20131025
  Transmission Date: 20140711
  Serious: Yes (Other)
  Sender: FDA-Public Use
  Company Number: CN-MYLANLABS-2013S1005581

PATIENT
  Age: 23 Year
  Sex: Female

DRUGS (1)
  1. KETAMINE [Suspect]
     Indication: DRUG ABUSE
     Route: 065

REACTIONS (7)
  - Lower urinary tract symptoms [Unknown]
  - Drug abuse [Recovered/Resolved]
  - Alanine aminotransferase increased [Unknown]
  - Reduced bladder capacity [Unknown]
  - Urine flow decreased [Unknown]
  - Hypertonic bladder [Unknown]
  - Hydronephrosis [Unknown]
